FAERS Safety Report 15627346 (Version 1)
Quarter: 2018Q4

REPORT INFORMATION
  Report Type: Spontaneous
  Country: US (occurrence: US)
  Receive Date: 20181113
  Receipt Date: 20181113
  Transmission Date: 20190205
  Serious: No
  Sender: FDA-Public Use
  Company Number: None

PATIENT
  Age: 53 Year
  Sex: Female
  Weight: 64.8 kg

DRUGS (7)
  1. TRESIBA [Suspect]
     Active Substance: INSULIN DEGLUDEC
     Indication: TYPE 2 DIABETES MELLITUS
     Route: 058
     Dates: start: 20180618, end: 20180716
  2. GLIMEPIRIDE. [Concomitant]
     Active Substance: GLIMEPIRIDE
     Dates: start: 20180607
  3. TRESIBA [Concomitant]
     Active Substance: INSULIN DEGLUDEC
     Dates: start: 20180618, end: 20180716
  4. OZEMPIC [Concomitant]
     Active Substance: SEMAGLUTIDE
     Dates: start: 20180618
  5. METFORMIN [Concomitant]
     Active Substance: METFORMIN HYDROCHLORIDE
  6. TOUJEO [Concomitant]
     Active Substance: INSULIN GLARGINE
     Dates: start: 20180716
  7. XULTOPHY 100/3.6 [Concomitant]
     Active Substance: INSULIN DEGLUDEC\LIRAGLUTIDE
     Dates: start: 20180119, end: 20180618

REACTIONS (2)
  - Product substitution issue [None]
  - Oedema peripheral [None]

NARRATIVE: CASE EVENT DATE: 20180718
